FAERS Safety Report 25481455 (Version 2)
Quarter: 2025Q3

REPORT INFORMATION
  Report Type: Report from Study
  Country: US (occurrence: US)
  Receive Date: 20250626
  Receipt Date: 20250828
  Transmission Date: 20251021
  Serious: Yes (Hospitalization, Other)
  Sender: ABBVIE
  Company Number: US-ABBVIE-6340367

PATIENT
  Age: 61 Year
  Sex: Male

DRUGS (1)
  1. CREON [Suspect]
     Active Substance: PANCRELIPASE AMYLASE\PANCRELIPASE LIPASE\PANCRELIPASE PROTEASE
     Indication: Malabsorption
     Route: 048
     Dates: start: 20250317

REACTIONS (5)
  - Rotavirus infection [Recovering/Resolving]
  - Hypervolaemia [Unknown]
  - Coeliac disease [Unknown]
  - Dehydration [Recovering/Resolving]
  - Varicose vein [Unknown]

NARRATIVE: CASE EVENT DATE: 20250101
